FAERS Safety Report 8816946 (Version 1)
Quarter: 2012Q4

REPORT INFORMATION
  Report Type: Spontaneous
  Country: US (occurrence: None)
  Receive Date: 20121002
  Receipt Date: 20121002
  Transmission Date: 20130627
  Serious: Yes (Other)
  Sender: FDA-Public Use
  Company Number: None

PATIENT
  Age: 37 Year
  Sex: Female
  Weight: 74.84 kg

DRUGS (2)
  1. CIPROFLOXACIN [Suspect]
     Indication: ABDOMINAL PAIN
     Route: 048
  2. CIPROFLOXACIN [Suspect]
     Indication: URINARY TRACT INFECTION
     Route: 048

REACTIONS (16)
  - Burning sensation [None]
  - Paraesthesia [None]
  - Hypoaesthesia [None]
  - Hypoaesthesia oral [None]
  - Hypoaesthesia [None]
  - Tremor [None]
  - Anxiety [None]
  - Paraesthesia oral [None]
  - Anxiety [None]
  - Headache [None]
  - Nausea [None]
  - Nervousness [None]
  - Tremor [None]
  - Disorientation [None]
  - Musculoskeletal pain [None]
  - Arthralgia [None]
